FAERS Safety Report 4952155-8 (Version None)
Quarter: 2006Q1

REPORT INFORMATION
  Report Type: 
  Country: None (occurrence: None)
  Receive Date: 20060320
  Receipt Date: 20060307
  Transmission Date: 20060701
  Serious: Yes (Hospitalization)
  Sender: FDA-Public Use
  Company Number: 223036

PATIENT
  Age: 53 Year
  Sex: Female

DRUGS (2)
  1. HERCEPTIN [Suspect]
     Indication: BREAST CANCER
     Dosage: 6 + 8MG/KG, Q3W, INTRAVENOUS
     Route: 042
     Dates: start: 20051013
  2. HERCEPTIN [Suspect]
     Indication: BREAST CANCER
     Dosage: 6 + 8MG/KG, Q3W, INTRAVENOUS
     Route: 042
     Dates: start: 20051013

REACTIONS (1)
  - ENDOMETRIAL CANCER [None]
